FAERS Safety Report 5452305-3 (Version None)
Quarter: 2007Q3

REPORT INFORMATION
  Report Type: 
  Country: None (occurrence: None)
  Receive Date: 20070912
  Receipt Date: 20070912
  Transmission Date: 20080115
  Serious: Yes (Other)
  Sender: FDA-Public Use
  Company Number: None

PATIENT
  Age: 54 Year
  Sex: Female

DRUGS (4)
  1. CYTOXAN [Suspect]
     Indication: BREAST CANCER
     Dosage: 600 MG/M2 OR 1000MG Q 3 WKS X 4 CYCLES IV DRIP
     Route: 041
     Dates: start: 19950425, end: 19950627
  2. ADRIAMYCIN PFS [Suspect]
     Indication: BREAST CANCER
     Dosage: 75 MG/M2 OR 125 MG Q 3 WKS X 4 CYCLES IV DRIP
     Route: 041
     Dates: start: 19950425, end: 19950627
  3. TAXOL [Concomitant]
  4. TAMOXIFEN CITRATE [Concomitant]

REACTIONS (2)
  - CONTRALATERAL BREAST CANCER [None]
  - METASTASES TO BREAST [None]
